FAERS Safety Report 8965384 (Version 2)
Quarter: 2013Q2

REPORT INFORMATION
  Report Type: Spontaneous
  Country: NZ (occurrence: NZ)
  Receive Date: 20121213
  Receipt Date: 20130506
  Transmission Date: 20140414
  Serious: Yes (Life-Threatening, Hospitalization, Other)
  Sender: FDA-Public Use
  Company Number: NZ-ELI_LILLY_AND_COMPANY-NZ201212001933

PATIENT
  Age: 46 Year
  Sex: Female

DRUGS (3)
  1. OLANZAPINE [Suspect]
     Indication: SCHIZOPHRENIA
     Dosage: 10 MG, QD
     Route: 048
  2. CITALOPRAM [Interacting]
     Indication: MAJOR DEPRESSION
     Dosage: 10 MG, QD
     Route: 048
     Dates: end: 20120617
  3. OMEPRAZOLE [Interacting]
     Indication: DYSPEPSIA
     Dosage: 20 MG, QD
     Route: 048
     Dates: start: 20120606, end: 20120622

REACTIONS (4)
  - Hyponatraemia [Recovered/Resolved]
  - Grand mal convulsion [Recovered/Resolved]
  - Fall [Recovered/Resolved]
  - Drug interaction [Recovered/Resolved]
